FAERS Safety Report 7200770-3 (Version None)
Quarter: 2010Q4

REPORT INFORMATION
  Report Type: 
  Country: None (occurrence: None)
  Receive Date: 20101228
  Receipt Date: 20101217
  Transmission Date: 20110411
  Serious: Yes (Hospitalization, Other)
  Sender: FDA-Public Use
  Company Number: US-ELI_LILLY_AND_COMPANY-US200907005599

PATIENT
  Sex: Female

DRUGS (12)
  1. FORTEO [Suspect]
     Indication: OSTEOPOROSIS
     Dosage: 20 UG, DAILY (1/D)
     Dates: start: 20090301
  2. BACLOFEN [Concomitant]
  3. CALCIUM WITH VITAMIN D [Concomitant]
  4. VITAMIN D [Concomitant]
  5. MULTI-VITAMIN [Concomitant]
     Dosage: 1 D/F, DAILY (1/D)
  6. NEFAZODONE HCL [Concomitant]
  7. NEURONTIN [Concomitant]
  8. PREVACID [Concomitant]
  9. HALCION [Concomitant]
  10. VICODIN [Concomitant]
  11. ZYRTEC [Concomitant]
  12. CYMBALTA [Concomitant]

REACTIONS (3)
  - MUSCLE SPASMS [None]
  - TRANSIENT ISCHAEMIC ATTACK [None]
  - VITAMIN D DECREASED [None]
